FAERS Safety Report 9648831 (Version 5)
Quarter: 2020Q2

REPORT INFORMATION
  Report Type: Report from Study
  Country: US (occurrence: US)
  Receive Date: 20131028
  Receipt Date: 20200626
  Transmission Date: 20200714
  Serious: Yes (Hospitalization, Other)
  Sender: FDA-Public Use
  Company Number: US-SA-2013SA107766

PATIENT

DRUGS (11)
  1. HUMALOG [Concomitant]
     Active Substance: INSULIN LISPRO
     Dosage: UNK
  2. INSULIN GLARGINE [Suspect]
     Active Substance: INSULIN GLARGINE
     Dosage: UNK UNK, BID
     Route: 051
     Dates: start: 2013
  3. INSULIN GLARGINE [Suspect]
     Active Substance: INSULIN GLARGINE
     Dosage: UNK UNK, HS
     Route: 051
  4. INSULIN GLARGINE [Suspect]
     Active Substance: INSULIN GLARGINE
     Dosage: UNK UNK, HS
     Route: 051
  5. INSULIN GLARGINE [Suspect]
     Active Substance: INSULIN GLARGINE
     Dosage: 10-15, HS
     Route: 058
     Dates: start: 2002
  6. BRILINTA [Concomitant]
     Active Substance: TICAGRELOR
     Indication: STENT PLACEMENT
     Dosage: 19 MG
     Route: 065
  7. INSULIN GLARGINE [Suspect]
     Active Substance: INSULIN GLARGINE
     Indication: TYPE 2 DIABETES MELLITUS
     Dosage: UNK, BID
     Route: 051
     Dates: start: 2013, end: 201903
  8. INSULIN GLARGINE [Suspect]
     Active Substance: INSULIN GLARGINE
     Dosage: 10-12, UNK
     Route: 058
  9. TOUJEO [Suspect]
     Active Substance: INSULIN GLARGINE
     Dosage: 20 U, QD
     Dates: start: 20190313
  10. METFORMIN [Concomitant]
     Active Substance: METFORMIN HYDROCHLORIDE
     Dosage: UNK
  11. INSULIN GLARGINE [Suspect]
     Active Substance: INSULIN GLARGINE
     Dosage: UNK UNK, BID
     Route: 051
     Dates: start: 2013

REACTIONS (22)
  - Cerebrovascular accident [Recovered/Resolved]
  - Weight decreased [Unknown]
  - Blood glucose increased [Recovered/Resolved]
  - Insulin resistance [Recovered/Resolved]
  - Stent placement [Unknown]
  - Myocardial infarction [Recovering/Resolving]
  - Nausea [Recovered/Resolved]
  - Heart rate increased [Unknown]
  - Blood glucose decreased [Recovered/Resolved]
  - Product dose omission [Unknown]
  - Wrong technique in device usage process [Unknown]
  - Coma [Recovered/Resolved]
  - Malaise [Unknown]
  - Device physical property issue [Unknown]
  - Inappropriate schedule of product administration [Unknown]
  - Myocardial infarction [Recovered/Resolved]
  - Myocardial infarction [Recovered/Resolved]
  - Gastric disorder [Recovered/Resolved]
  - Catheterisation cardiac [Unknown]
  - Weight decreased [Not Recovered/Not Resolved]
  - Musculoskeletal discomfort [Unknown]
  - Blood glucose increased [Unknown]

NARRATIVE: CASE EVENT DATE: 2013
